FAERS Safety Report 9119318 (Version 1)
Quarter: 2013Q1

REPORT INFORMATION
  Report Type: Spontaneous
  Country: US (occurrence: None)
  Receive Date: 20130221
  Receipt Date: 20130221
  Transmission Date: 20140127
  Serious: Yes (Other)
  Sender: FDA-Public Use
  Company Number: None

PATIENT
  Age: 11 Year
  Sex: Female
  Weight: 32 kg

DRUGS (3)
  1. LAMOTRIGINE [Suspect]
     Indication: ABNORMAL BEHAVIOUR
     Dates: start: 20130101, end: 20130127
  2. ABILIFY [Concomitant]
  3. BUSPAR [Concomitant]

REACTIONS (4)
  - Acute hepatic failure [None]
  - Liver transplant [None]
  - Hepatic necrosis [None]
  - Influenza A virus test positive [None]
